FAERS Safety Report 8382352-3 (Version None)
Quarter: 2012Q2

REPORT INFORMATION
  Report Type: 
  Country: None (occurrence: None)
  Receive Date: 20120524
  Receipt Date: 20120514
  Transmission Date: 20120825
  Serious: Yes (Hospitalization)
  Sender: FDA-Public Use
  Company Number: SK-JNJFOC-20120512686

PATIENT
  Sex: Male
  Weight: 105 kg

DRUGS (2)
  1. HYPERTENSION MEDICATION NOS [Concomitant]
  2. USTEKINUMAB [Suspect]
     Indication: PSORIASIS
     Route: 058
     Dates: start: 20090901

REACTIONS (2)
  - HYPERTENSION [None]
  - HAEMORRHAGE INTRACRANIAL [None]
